FAERS Safety Report 13279631 (Version 1)
Quarter: 2017Q1

REPORT INFORMATION
  Report Type: Spontaneous
  Country: US (occurrence: US)
  Receive Date: 20170301
  Receipt Date: 20170301
  Transmission Date: 20170428
  Serious: Yes (Other)
  Sender: FDA-Public Use
  Company Number: US-ROCHE-1899024

PATIENT
  Age: 54 Year
  Sex: Male

DRUGS (2)
  1. RITUXAN [Suspect]
     Active Substance: RITUXIMAB
     Indication: CONGENITAL SYPHILITIC OSTEOCHONDRITIS
     Route: 042
  2. RITUXAN [Suspect]
     Active Substance: RITUXIMAB
     Indication: B-LYMPHOCYTE COUNT INCREASED

REACTIONS (3)
  - Angioedema [Not Recovered/Not Resolved]
  - Speech disorder [Not Recovered/Not Resolved]
  - Swollen tongue [Not Recovered/Not Resolved]

NARRATIVE: CASE EVENT DATE: 201702
